FAERS Safety Report 7493173-8 (Version None)
Quarter: 2011Q2

REPORT INFORMATION
  Report Type: 
  Country: None (occurrence: None)
  Receive Date: 20110520
  Receipt Date: 20110516
  Transmission Date: 20111010
  Serious: Yes (Congenital Anomaly, Other)
  Sender: FDA-Public Use
  Company Number: US-PFIZER INC-2008049830

PATIENT
  Sex: Male
  Weight: 4.08 kg

DRUGS (4)
  1. DIAZEPAM [Concomitant]
     Route: 064
  2. NORTRIPTYLINE HCL [Concomitant]
     Route: 064
  3. ZOLOFT [Suspect]
     Dosage: 100 MG, 1X/DAY
     Route: 064
     Dates: start: 20000603
  4. METOCLOPRAMIDE [Concomitant]
     Route: 064

REACTIONS (5)
  - MITRAL VALVE DISEASE [None]
  - COARCTATION OF THE AORTA [None]
  - PULMONARY HYPERTENSION [None]
  - RESPIRATORY DISTRESS [None]
  - DRUG EXPOSURE DURING PREGNANCY [None]
